FAERS Safety Report 19469450 (Version 1)
Quarter: 2021Q2

REPORT INFORMATION
  Report Type: Report from Study
  Country: None (occurrence: US)
  Receive Date: 20210629
  Receipt Date: 20210629
  Transmission Date: 20210717
  Serious: Yes (Other)
  Sender: FDA-Public Use
  Company Number: US-ABBVIE-21K-163-3950121-00

PATIENT
  Age: 63 Year
  Sex: Female
  Weight: 63.11 kg

DRUGS (16)
  1. HUMIRA [Suspect]
     Active Substance: ADALIMUMAB
     Indication: RHEUMATOID ARTHRITIS
     Dosage: CITRATE FREE
     Route: 058
     Dates: start: 202009, end: 20210423
  2. PFIZER?BIONTECH COVID?19 VACCINE [Concomitant]
     Active Substance: TOZINAMERAN
     Route: 030
     Dates: start: 20210405, end: 20210405
  3. FEROSUL [Concomitant]
     Active Substance: FERROUS SULFATE
     Indication: PRODUCT USED FOR UNKNOWN INDICATION
  4. HYDROXYCHLOROQUINE [Concomitant]
     Active Substance: HYDROXYCHLOROQUINE
     Indication: RHEUMATOID ARTHRITIS
  5. HORIZANT [Concomitant]
     Active Substance: GABAPENTIN ENACARBIL
     Indication: RESTLESS LEGS SYNDROME
  6. CLONAZEPAM. [Concomitant]
     Active Substance: CLONAZEPAM
     Indication: RESTLESS LEGS SYNDROME
  7. CELEBREX [Concomitant]
     Active Substance: CELECOXIB
     Indication: INFLAMMATION
  8. SIMVASTATIN. [Concomitant]
     Active Substance: SIMVASTATIN
     Indication: HYPERTENSION
  9. OXYCODONE [Concomitant]
     Active Substance: OXYCODONE
     Indication: PRODUCT USED FOR UNKNOWN INDICATION
  10. METHOTREXATE. [Concomitant]
     Active Substance: METHOTREXATE
     Indication: RHEUMATOID ARTHRITIS
  11. TYMLOS [Concomitant]
     Active Substance: ABALOPARATIDE
     Indication: PRODUCT USED FOR UNKNOWN INDICATION
  12. PFIZER?BIONTECH COVID?19 VACCINE [Concomitant]
     Active Substance: TOZINAMERAN
     Indication: COVID-19 IMMUNISATION
     Route: 030
     Dates: start: 20210314, end: 20210314
  13. METFORMIN [Concomitant]
     Active Substance: METFORMIN HYDROCHLORIDE
     Indication: DIABETES MELLITUS
  14. FOLIC ACID. [Concomitant]
     Active Substance: FOLIC ACID
     Indication: RHEUMATOID ARTHRITIS
  15. NP THYROID [Concomitant]
     Active Substance: LEVOTHYROXINE\LIOTHYRONINE
     Indication: PRODUCT USED FOR UNKNOWN INDICATION
  16. NEUPRO [Concomitant]
     Active Substance: ROTIGOTINE
     Indication: RESTLESS LEGS SYNDROME

REACTIONS (8)
  - Blood alkaline phosphatase increased [Not Recovered/Not Resolved]
  - Scoliosis [Not Recovered/Not Resolved]
  - Oropharyngeal pain [Not Recovered/Not Resolved]
  - Intervertebral disc degeneration [Not Recovered/Not Resolved]
  - Dyspnoea [Recovered/Resolved]
  - Cough [Not Recovered/Not Resolved]
  - Incision site impaired healing [Not Recovered/Not Resolved]
  - Rheumatoid arthritis [Not Recovered/Not Resolved]

NARRATIVE: CASE EVENT DATE: 202012
